FAERS Safety Report 7460539-1 (Version None)
Quarter: 2011Q2

REPORT INFORMATION
  Report Type: 
  Country: None (occurrence: None)
  Receive Date: 20110505
  Receipt Date: 20110429
  Transmission Date: 20111010
  Serious: Yes (Hospitalization, Other)
  Sender: FDA-Public Use
  Company Number: PHHY2011ES36345

PATIENT
  Age: 77 Year
  Sex: Female

DRUGS (6)
  1. SERTRALINE [Concomitant]
     Indication: DEPRESSION
     Dates: start: 20091119, end: 20091229
  2. STILNOX [Concomitant]
     Dosage: 1 DF, UNK
     Route: 048
  3. HYGROTON [Interacting]
     Indication: HYPERTENSION
     Dosage: 1 DF, UNK
     Route: 048
     Dates: end: 20091229
  4. ENALAPRIL [Suspect]
     Indication: HYPERTENSION
     Route: 048
     Dates: end: 20091229
  5. PARACETAMOL [Concomitant]
     Dosage: 1 DF, UNK
     Route: 048
  6. OMEPRAZOLE [Concomitant]
     Indication: PROPHYLAXIS AGAINST GASTROINTESTINAL ULCER
     Dosage: 1 DF, UNK

REACTIONS (8)
  - BLOOD PRESSURE DECREASED [None]
  - FREQUENT BOWEL MOVEMENTS [None]
  - METABOLIC ACIDOSIS [None]
  - RENAL FAILURE ACUTE [None]
  - KIDNEY MALROTATION [None]
  - DYSPEPSIA [None]
  - DRUG INTERACTION [None]
  - HAEMOGLOBIN DECREASED [None]
